FAERS Safety Report 8491651-6 (Version None)
Quarter: 2012Q3

REPORT INFORMATION
  Report Type: 
  Country: None (occurrence: None)
  Receive Date: 20120706
  Receipt Date: 20120628
  Transmission Date: 20120928
  Serious: Yes (Hospitalization)
  Sender: FDA-Public Use
  Company Number: GB-ABBOTT-12P-167-0948206-00

PATIENT
  Sex: Male

DRUGS (4)
  1. HUMIRA [Suspect]
     Indication: CROHN'S DISEASE
     Route: 058
     Dates: start: 20120501
  2. HUMIRA [Suspect]
     Route: 058
  3. HUMIRA [Suspect]
     Dates: start: 20120426
  4. HUMIRA [Suspect]
     Dates: start: 20120303

REACTIONS (27)
  - MIGRAINE [None]
  - LOWER RESPIRATORY TRACT INFECTION [None]
  - OEDEMA PERIPHERAL [None]
  - CHEST DISCOMFORT [None]
  - ALOPECIA [None]
  - TINNITUS [None]
  - PAIN [None]
  - JOINT SWELLING [None]
  - HEADACHE [None]
  - SKIN EXFOLIATION [None]
  - MUSCLE SPASMS [None]
  - VISION BLURRED [None]
  - CONJUNCTIVITIS [None]
  - SYNCOPE [None]
  - INSOMNIA [None]
  - COUGH [None]
  - DEPRESSION SUICIDAL [None]
  - PALPITATIONS [None]
  - DYSPNOEA [None]
  - PANIC ATTACK [None]
  - PRURITUS GENERALISED [None]
  - OROPHARYNGEAL PAIN [None]
  - ASTHMA [None]
  - RHINORRHOEA [None]
  - SKIN ULCER [None]
  - DECREASED APPETITE [None]
  - DYSURIA [None]
